FAERS Safety Report 5114958-9 (Version None)
Quarter: 2006Q3

REPORT INFORMATION
  Report Type: 
  Country: None (occurrence: None)
  Receive Date: 20060925
  Receipt Date: 20060925
  Transmission Date: 20061208
  Serious: Yes (Hospitalization)
  Sender: FDA-Public Use
  Company Number: None

PATIENT
  Sex: Female
  Weight: 43.9989 kg

DRUGS (2)
  1. HUMIRA [Suspect]
     Indication: RHEUMATOID ARTHRITIS
     Dosage: ONE GOW SQ
     Route: 058
     Dates: start: 20050628, end: 20060828
  2. METHOTREXATE [Concomitant]

REACTIONS (2)
  - CONSTIPATION [None]
  - LUNG NEOPLASM MALIGNANT [None]
